FAERS Safety Report 5777171-8 (Version None)
Quarter: 2008Q2

REPORT INFORMATION
  Report Type: 
  Country: None (occurrence: None)
  Receive Date: 20080618
  Receipt Date: 20080606
  Transmission Date: 20081010
  Serious: Yes (Other)
  Sender: FDA-Public Use
  Company Number: US-AVENTIS-200717519US

PATIENT
  Sex: Female

DRUGS (30)
  1. KETEK [Suspect]
     Dosage: FREQUENCY: AFTER MEALS
     Dates: start: 20040920
  2. KETEK [Suspect]
     Dosage: FREQUENCY: AFTER MEALS
     Dates: start: 20040929
  3. KETEK [Suspect]
     Indication: SINUSITIS
     Dosage: FREQUENCY: AFTER MEALS
     Dates: start: 20040920
  4. KETEK [Suspect]
     Dosage: FREQUENCY: AFTER MEALS
     Dates: start: 20040929
  5. KETEK [Suspect]
     Dosage: FREQUENCY: AFTER MEALS
     Dates: start: 20040920
  6. KETEK [Suspect]
     Dosage: FREQUENCY: AFTER MEALS
     Dates: start: 20040929
  7. CORTISONE [Suspect]
  8. SINGULAIR [Concomitant]
     Dosage: DOSE: UNK
     Dates: start: 20041201
  9. MIRALAX [Concomitant]
     Dosage: DOSE: UNK
     Dates: start: 20030101
  10. BELLADONNA [Concomitant]
     Dosage: DOSE: UNK
     Dates: start: 20030101
  11. ELAVIL [Concomitant]
     Dosage: DOSE: UNK
     Dates: start: 20030101
  12. ELAVIL [Concomitant]
     Dosage: DOSE: UNK
     Dates: start: 20030101
  13. YASIM [Concomitant]
     Dosage: DOSE: 1 TABLET
     Dates: start: 20040805, end: 20060826
  14. ZITHROMAX [Concomitant]
     Route: 048
     Dates: start: 20040910, end: 20040910
  15. ZITHROMAX [Concomitant]
     Route: 048
     Dates: start: 20040911
  16. DECONGESTANT [Concomitant]
     Dosage: DOSE: UNK
  17. ANALGESICS [Concomitant]
     Dosage: DOSE: UNK
  18. ADVIL [Concomitant]
     Dosage: DOSE: UNK
  19. TYLENOL SINUS                      /00908001/ [Concomitant]
     Dosage: DOSE: UNK
  20. SINUTABS [Concomitant]
     Dosage: DOSE: UNK
  21. ROBITUSSIN [Concomitant]
     Dosage: DOSE: UNK
  22. DELSYM [Concomitant]
     Dosage: DOSE: UNK
  23. VITAMINS NOS [Concomitant]
     Dosage: DOSE: UNK
  24. LYRICA [Concomitant]
     Dates: start: 20070201
  25. SKELAXIN [Concomitant]
     Indication: MUSCLE SPASMS
  26. VALIUM [Concomitant]
     Indication: PAIN
  27. VALIUM [Concomitant]
  28. PENICILLIN [Concomitant]
     Dosage: DOSE: UNK
  29. LEVAQUIN [Concomitant]
     Dosage: DOSE: UNK
  30. METHYLPREDNISOLONE [Concomitant]
     Dates: start: 20040901

REACTIONS (17)
  - ASTHENIA [None]
  - FATIGUE [None]
  - FIBROMYALGIA [None]
  - HEADACHE [None]
  - HEPATIC ENZYME INCREASED [None]
  - HEPATITIS [None]
  - HEPATOTOXICITY [None]
  - HYPERHIDROSIS [None]
  - INFLAMMATION [None]
  - JAUNDICE [None]
  - LETHARGY [None]
  - MYOPIA [None]
  - NAUSEA [None]
  - PAIN [None]
  - PYREXIA [None]
  - VISION BLURRED [None]
  - VOMITING [None]
